FAERS Safety Report 22106165 (Version 1)
Quarter: 2023Q1

REPORT INFORMATION
  Report Type: Spontaneous
  Country: CN (occurrence: CN)
  Receive Date: 20230317
  Receipt Date: 20230317
  Transmission Date: 20230417
  Serious: Yes (Life-Threatening, Other)
  Sender: FDA-Public Use
  Company Number: CN-SA-SAC20230314000333

PATIENT
  Age: 62 Year
  Sex: Male
  Weight: 70 kg

DRUGS (2)
  1. ZOLPIDEM TARTRATE [Suspect]
     Active Substance: ZOLPIDEM TARTRATE
     Indication: Self-medication
     Dosage: 24 DF, 1X
     Route: 048
     Dates: start: 20230106, end: 20230106
  2. INSULIN GLARGINE [Concomitant]
     Active Substance: INSULIN GLARGINE
     Indication: Self-medication
     Dosage: 5 DF, 1X
     Dates: start: 20230107, end: 20230107

REACTIONS (4)
  - Loss of consciousness [Recovering/Resolving]
  - Intentional overdose [Unknown]
  - Unresponsive to stimuli [Recovering/Resolving]
  - Hypoglycaemia [Recovering/Resolving]

NARRATIVE: CASE EVENT DATE: 20230106
